FAERS Safety Report 9564952 (Version 4)
Quarter: 2013Q4

REPORT INFORMATION
  Report Type: Spontaneous
  Country: JP (occurrence: JP)
  Receive Date: 20130930
  Receipt Date: 20131209
  Transmission Date: 20140711
  Serious: Yes (Hospitalization, Other)
  Sender: FDA-Public Use
  Company Number: PHHY2013JP108200

PATIENT
  Sex: Female

DRUGS (4)
  1. ZOMETA [Suspect]
     Indication: BREAST MASS
     Route: 041
  2. ZOMETA [Suspect]
     Indication: METASTASES TO BONE
  3. ANTINEOPLASTIC AGENTS [Concomitant]
  4. RADIATION THERAPY [Concomitant]

REACTIONS (14)
  - Fanconi syndrome acquired [Recovering/Resolving]
  - Renal impairment [Unknown]
  - Proteinuria [Unknown]
  - Blood creatinine increased [Recovering/Resolving]
  - Hypokalaemia [Recovering/Resolving]
  - Hypophosphataemia [Recovering/Resolving]
  - Hypouricaemia [Recovering/Resolving]
  - Renal glycosuria [Recovering/Resolving]
  - Renal tubular disorder [Recovering/Resolving]
  - Tubulointerstitial nephritis [Recovering/Resolving]
  - Hepatic cancer metastatic [Unknown]
  - Lung neoplasm malignant [Unknown]
  - Breast cancer [Unknown]
  - Lymphadenopathy [Unknown]
